FAERS Safety Report 12473908 (Version 5)
Quarter: 2016Q4

REPORT INFORMATION
  Report Type: Report from Study
  Country: AT (occurrence: AT)
  Receive Date: 20160616
  Receipt Date: 20161107
  Transmission Date: 20170207
  Serious: Yes (Other)
  Sender: FDA-Public Use
  Company Number: AU-INCYTE CORPORATION-2016IN003444

PATIENT
  Age: 76 Year
  Sex: Male

DRUGS (7)
  1. JAKAVI [Suspect]
     Active Substance: RUXOLITINIB
     Indication: MYELOFIBROSIS
     Dosage: 5 MG, UNK
     Route: 048
     Dates: start: 20130121, end: 20160517
  2. MUCOBENE [Concomitant]
     Dosage: 600 MG, QD
  3. PARACODIN [Concomitant]
     Active Substance: DIHYDROCODEINE BITARTRATE
     Indication: PRODUCT USED FOR UNKNOWN INDICATION
     Dosage: 20 OT, QD (0-0-20)
     Route: 065
  4. MUCOBENE [Concomitant]
     Dosage: 600 MG, QD
  5. MUCOBENE [Concomitant]
     Dosage: 600 MG, UNK
  6. MUCOBENE [Concomitant]
     Dosage: 600 MG, QD
  7. MUCOBENE [Concomitant]
     Indication: PRODUCT USED FOR UNKNOWN INDICATION
     Dosage: 600 MG, QD (1-0-0)
     Route: 065

REACTIONS (7)
  - Asthenia [Unknown]
  - Sleep disorder [Unknown]
  - Haematoma [Not Recovered/Not Resolved]
  - Abdominal pain [Unknown]
  - Restlessness [Unknown]
  - Upper respiratory tract infection [Not Recovered/Not Resolved]
  - Thrombocytopenia [Not Recovered/Not Resolved]

NARRATIVE: CASE EVENT DATE: 20160517
